FAERS Safety Report 6933827-2 (Version None)
Quarter: 2010Q3

REPORT INFORMATION
  Report Type: 
  Country: None (occurrence: None)
  Receive Date: 20100820
  Receipt Date: 20100810
  Transmission Date: 20110219
  Serious: Yes (Other)
  Sender: FDA-Public Use
  Company Number: CA-JNJFOC-20100204389

PATIENT
  Sex: Female
  Weight: 81 kg

DRUGS (9)
  1. REMICADE [Suspect]
     Indication: BEHCET'S SYNDROME
     Route: 042
  2. PREDNISONE [Concomitant]
  3. METFORMIN [Concomitant]
  4. ALDACTONE [Concomitant]
  5. CITALOPRAM HYDROBROMIDE [Concomitant]
  6. ALPRAZOLAM [Concomitant]
  7. AZATHIOPRINE [Concomitant]
  8. CLOBETASOL PROPIONATE [Concomitant]
  9. TETRA COMPOUND GARGLE [Concomitant]

REACTIONS (1)
  - EYE INFECTION FUNGAL [None]
